FAERS Safety Report 10329646 (Version 2)
Quarter: 2014Q4

REPORT INFORMATION
  Report Type: Spontaneous
  Country: US (occurrence: US)
  Receive Date: 20140721
  Receipt Date: 20141017
  Transmission Date: 20150528
  Serious: No
  Sender: FDA-Public Use
  Company Number: US-ASTRAZENECA-2014SE49643

PATIENT
  Age: 61 Year
  Sex: Female
  Weight: 84.4 kg

DRUGS (13)
  1. AMANTADINE [Concomitant]
     Active Substance: AMANTADINE
  2. AMPYRA [Interacting]
     Active Substance: DALFAMPRIDINE
     Indication: GAIT DISTURBANCE
     Route: 048
     Dates: start: 20140609, end: 20140705
  3. LEVOTHYROXINE [Concomitant]
     Active Substance: LEVOTHYROXINE
  4. AMPYRA [Interacting]
     Active Substance: DALFAMPRIDINE
     Indication: GAIT DISTURBANCE
     Route: 048
     Dates: start: 20140602, end: 20140608
  5. MACRODATIN [Concomitant]
  6. RESVERATROL [Concomitant]
     Active Substance: RESVERATROL
  7. AZITHROMYCIN [Concomitant]
     Active Substance: AZITHROMYCIN ANHYDROUS
  8. DETROL [Concomitant]
     Active Substance: TOLTERODINE TARTRATE
  9. TOPROL XL [Suspect]
     Active Substance: METOPROLOL SUCCINATE
     Indication: BLOOD PRESSURE ABNORMAL
     Route: 048
     Dates: end: 20140602
  10. AMPYRA [Interacting]
     Active Substance: DALFAMPRIDINE
     Indication: GAIT DISTURBANCE
     Route: 048
     Dates: start: 20140526, end: 20140601
  11. LEVSIN [Concomitant]
     Active Substance: HYOSCYAMINE SULFATE
  12. KRILL OIL [Concomitant]
     Active Substance: DIETARY SUPPLEMENT
  13. GENERIC OF BONIVA [Concomitant]

REACTIONS (12)
  - Blood pressure fluctuation [Recovered/Resolved]
  - Heart rate increased [Recovered/Resolved]
  - Feeling abnormal [Recovered/Resolved]
  - Blood pressure decreased [Recovering/Resolving]
  - Hypotension [Unknown]
  - Blood pressure increased [Recovering/Resolving]
  - Palpitations [Recovered/Resolved]
  - Aggression [Unknown]
  - Therapeutic response unexpected [Unknown]
  - Drug interaction [Unknown]
  - Malaise [Recovered/Resolved]
  - Sleep disorder [Recovered/Resolved]

NARRATIVE: CASE EVENT DATE: 201405
